FAERS Safety Report 13392770 (Version 3)
Quarter: 2017Q3

REPORT INFORMATION
  Report Type: Spontaneous
  Country: US (occurrence: US)
  Receive Date: 20170331
  Receipt Date: 20170825
  Transmission Date: 20171127
  Serious: Yes (Hospitalization)
  Sender: FDA-Public Use
  Company Number: US-BAYER-2017-062157

PATIENT
  Age: 30 Year
  Sex: Female
  Weight: 47.62 kg

DRUGS (2)
  1. MIRENA [Suspect]
     Active Substance: LEVONORGESTREL
     Indication: MENORRHAGIA
  2. MIRENA [Suspect]
     Active Substance: LEVONORGESTREL
     Indication: CONTRACEPTION
     Dosage: 20 MCG/24HR, CONT
     Route: 015
     Dates: start: 20120705, end: 20140328

REACTIONS (3)
  - Pain [None]
  - Urinary tract infection bacterial [None]
  - Uterine perforation [None]

NARRATIVE: CASE EVENT DATE: 2014
